FAERS Safety Report 7295866-4 (Version None)
Quarter: 2011Q1

REPORT INFORMATION
  Report Type: 
  Country: None (occurrence: None)
  Receive Date: 20110216
  Receipt Date: 20110112
  Transmission Date: 20110831
  Serious: No
  Sender: FDA-Public Use
  Company Number: US-ABBOTT-11P-163-0696595-00

PATIENT
  Sex: Male
  Weight: 118.49 kg

DRUGS (6)
  1. HYDROCODONE [Concomitant]
     Indication: PRODUCT USED FOR UNKNOWN INDICATION
     Dosage: 5/500
  2. SIMCOR [Suspect]
     Indication: LOW DENSITY LIPOPROTEIN INCREASED
     Dosage: 500/20 MG AT BEDTIME
     Dates: start: 20101230
  3. ASPIRIN [Concomitant]
     Indication: PRODUCT USED FOR UNKNOWN INDICATION
  4. CEPHALEXIN [Concomitant]
     Indication: PRODUCT USED FOR UNKNOWN INDICATION
  5. FLAXSEED OIL [Concomitant]
     Indication: PRODUCT USED FOR UNKNOWN INDICATION
  6. LOVAZA [Concomitant]
     Indication: PRODUCT USED FOR UNKNOWN INDICATION

REACTIONS (3)
  - FLUSHING [None]
  - LACERATION [None]
  - SKIN BURNING SENSATION [None]
